FAERS Safety Report 5048816-5 (Version None)
Quarter: 2006Q3

REPORT INFORMATION
  Report Type: 
  Country: None (occurrence: None)
  Receive Date: 20060706
  Receipt Date: 20060629
  Transmission Date: 20061208
  Serious: Yes (Hospitalization)
  Sender: FDA-Public Use
  Company Number: FRWYE242705AUG03

PATIENT
  Age: 31 Year
  Sex: Female

DRUGS (8)
  1. TACROLIMUS, CONTROL FOR SIROLIMUS (TACROLIMUS, CONTROL FOR SIROLIMUS, [Suspect]
     Indication: PROPHYLAXIS AGAINST TRANSPLANT REJECTION
     Dosage: SEE IMAGE
     Route: 048
     Dates: start: 20030313, end: 20030313
  2. TACROLIMUS, CONTROL FOR SIROLIMUS (TACROLIMUS, CONTROL FOR SIROLIMUS, [Suspect]
     Indication: PROPHYLAXIS AGAINST TRANSPLANT REJECTION
     Dosage: SEE IMAGE
     Route: 048
     Dates: start: 20030314, end: 20030701
  3. TACROLIMUS, CONTROL FOR SIROLIMUS (TACROLIMUS, CONTROL FOR SIROLIMUS, [Suspect]
     Indication: PROPHYLAXIS AGAINST TRANSPLANT REJECTION
     Dosage: SEE IMAGE
     Route: 048
     Dates: start: 20030701, end: 20030701
  4. TACROLIMUS, CONTROL FOR SIROLIMUS (TACROLIMUS, CONTROL FOR SIROLIMUS, [Suspect]
     Indication: PROPHYLAXIS AGAINST TRANSPLANT REJECTION
     Dosage: SEE IMAGE
     Route: 048
     Dates: start: 20030701
  5. APROVEL (IRBESARTAN, , 0) [Suspect]
     Dosage: ORAL
     Route: 048
  6. CELLCEPT [Suspect]
     Indication: PROPHYLAXIS AGAINST TRANSPLANT REJECTION
     Dosage: 1.5 G 1 X PER 1 DAY
     Route: 048
     Dates: start: 20030313
  7. CORTANCYL (PREDNISONE, , 0) [Suspect]
     Indication: PROPHYLAXIS AGAINST TRANSPLANT REJECTION
     Dosage: 10 MG 1X PER 1 DAY ORAL
     Route: 048
     Dates: start: 20030629
  8. CHLORMADINONE ACETATE TAB [Concomitant]

REACTIONS (9)
  - ARTERIOVENOUS FISTULA [None]
  - ASTHENIA [None]
  - DEHYDRATION [None]
  - DIARRHOEA [None]
  - ESCHERICHIA URINARY TRACT INFECTION [None]
  - IMMUNOSUPPRESSANT DRUG LEVEL INCREASED [None]
  - POLLAKIURIA [None]
  - PYELONEPHRITIS ACUTE [None]
  - RENAL FAILURE [None]
